FAERS Safety Report 8093465-8 (Version None)
Quarter: 2012Q1

REPORT INFORMATION
  Report Type: 
  Country: None (occurrence: None)
  Receive Date: 20120129
  Receipt Date: 20110902
  Transmission Date: 20120608
  Serious: Yes (Hospitalization)
  Sender: FDA-Public Use
  Company Number: US-ABBOTT-11P-163-0851301-00

PATIENT
  Sex: Male
  Weight: 72.64 kg

DRUGS (7)
  1. HUMIRA [Suspect]
     Dates: start: 20110420, end: 20110531
  2. NEXIUM [Concomitant]
     Indication: PRODUCT USED FOR UNKNOWN INDICATION
  3. HUMIRA [Suspect]
     Indication: CROHN'S DISEASE
     Dosage: FOUR INJECTIONS ON THE FIRST DAY
     Dates: start: 20110401, end: 20110401
  4. HUMIRA [Suspect]
     Dosage: TWO INJECTIONS TWO WEEKS AFTER 1ST DOSE
     Dates: start: 20110415, end: 20110415
  5. MULTI-VITAMINS [Concomitant]
     Indication: PRODUCT USED FOR UNKNOWN INDICATION
  6. IMURAN [Concomitant]
     Indication: CROHN'S DISEASE
  7. PREDNISONE TAB [Concomitant]
     Indication: CROHN'S DISEASE

REACTIONS (2)
  - STAPHYLOCOCCAL INFECTION [None]
  - INFECTED BITES [None]
